FAERS Safety Report 10789324 (Version 1)
Quarter: 2015Q1

REPORT INFORMATION
  Report Type: Spontaneous
  Country: US (occurrence: None)
  Receive Date: 20150211
  Receipt Date: 20150211
  Transmission Date: 20150721
  Serious: Yes (Life-Threatening, Hospitalization)
  Sender: FDA-Public Use
  Company Number: None

PATIENT
  Age: 66 Year
  Sex: Female

DRUGS (7)
  1. AMPYRA [Suspect]
     Active Substance: DALFAMPRIDINE
     Indication: MULTIPLE SCLEROSIS
     Route: 048
     Dates: start: 201401, end: 20150126
  2. AMANTADINE [Concomitant]
     Active Substance: AMANTADINE
  3. TOLTERODINE [Concomitant]
     Active Substance: TOLTERODINE
  4. CHOLECALCIFEROL [Concomitant]
     Active Substance: CHOLECALCIFEROL
  5. PREMARIN [Concomitant]
     Active Substance: ESTROGENS, CONJUGATED
  6. CLOBETASOL [Concomitant]
     Active Substance: CLOBETASOL
  7. PRAVASTATIN [Concomitant]
     Active Substance: PRAVASTATIN\PRAVASTATIN SODIUM

REACTIONS (3)
  - Generalised tonic-clonic seizure [None]
  - Fatigue [None]
  - Tongue biting [None]

NARRATIVE: CASE EVENT DATE: 20150207
